FAERS Safety Report 5183853-1 (Version None)
Quarter: 2006Q4

REPORT INFORMATION
  Report Type: 
  Country: None (occurrence: None)
  Receive Date: 20061220
  Receipt Date: 20061215
  Transmission Date: 20070319
  Serious: Yes (Other)
  Sender: FDA-Public Use
  Company Number: RO-GLAXOSMITHKLINE-B0451266A

PATIENT
  Age: 5 Year
  Sex: Female
  Weight: 22 kg

DRUGS (1)
  1. ZENTEL [Suspect]
     Indication: GIARDIASIS
     Route: 048
     Dates: start: 20060811, end: 20060815

REACTIONS (8)
  - ABDOMINAL PAIN [None]
  - ANOREXIA [None]
  - DIARRHOEA [None]
  - HEADACHE [None]
  - JAUNDICE [None]
  - NAUSEA [None]
  - VERTIGO [None]
  - VOMITING [None]
